FAERS Safety Report 20993997 (Version 2)
Quarter: 2022Q2

REPORT INFORMATION
  Report Type: Report from Study
  Country: ZA (occurrence: ZA)
  Receive Date: 20220622
  Receipt Date: 20220629
  Transmission Date: 20220721
  Serious: Yes (Other)
  Sender: FDA-Public Use
  Company Number: ZA-JNJFOC-20220637004

PATIENT
  Age: 2 Year
  Sex: Male
  Weight: 11.1 kg

DRUGS (11)
  1. SIRTURO [Suspect]
     Active Substance: BEDAQUILINE FUMARATE
     Indication: Tuberculosis
     Dosage: LAST DOSE WAS ON 27-MAY-2022
     Route: 048
     Dates: start: 20220204, end: 20220528
  2. LINEZOLID [Concomitant]
     Active Substance: LINEZOLID
     Indication: Tuberculosis
     Dosage: LAST DOSE WAS ON 27-MAY-2022
     Route: 048
     Dates: end: 20220528
  3. LINEZOLID [Concomitant]
     Active Substance: LINEZOLID
     Route: 048
     Dates: start: 20220609
  4. TERIZIDONE [Concomitant]
     Active Substance: TERIZIDONE
     Indication: Tuberculosis
     Dosage: LAST DOSE WAS ON 27-MAY-2022
     Route: 048
     Dates: end: 20220528
  5. TERIZIDONE [Concomitant]
     Active Substance: TERIZIDONE
     Route: 048
     Dates: start: 20220609
  6. CLOFAZIMINE [Concomitant]
     Active Substance: CLOFAZIMINE
     Indication: Tuberculosis
     Dosage: LAST DOSE WAS ON 27-MAY-2022
     Route: 048
     Dates: end: 20220528
  7. DELAMANID [Concomitant]
     Active Substance: DELAMANID
     Indication: Tuberculosis
     Dosage: LAST DOSE WAS ON 27-MAY-2022
     Route: 048
     Dates: end: 20220528
  8. DELAMANID [Concomitant]
     Active Substance: DELAMANID
     Route: 048
     Dates: start: 20220613
  9. PYRIDOXINE [Concomitant]
     Active Substance: PYRIDOXINE
     Indication: Prophylaxis
     Dosage: LAST DOSE WAS ON 27-MAY-2022
     Route: 048
  10. VITAMINS NOS [Concomitant]
     Active Substance: VITAMINS
     Indication: Malnutrition
     Dosage: LAST DOSE WAS ON 27-MAY-2022
     Route: 048
  11. ACETAMINOPHEN [Concomitant]
     Active Substance: ACETAMINOPHEN
     Indication: Upper respiratory tract infection
     Dosage: LAST DOSE WAS ON 27-MAY-2022
     Route: 048

REACTIONS (1)
  - Hepatitis viral [Recovered/Resolved]

NARRATIVE: CASE EVENT DATE: 20220527
